FAERS Safety Report 14894362 (Version 1)
Quarter: 2018Q2

REPORT INFORMATION
  Report Type: Spontaneous
  Country: DE (occurrence: DE)
  Receive Date: 20180515
  Receipt Date: 20180515
  Transmission Date: 20180711
  Serious: Yes (Hospitalization)
  Sender: FDA-Public Use
  Company Number: DE-CONCORDIA PHARMACEUTICALS INC.-E2B_00011666

PATIENT
  Age: 44 Year
  Sex: Male

DRUGS (4)
  1. IBUPROFEN. [Suspect]
     Active Substance: IBUPROFEN
     Indication: ARTHRALGIA
  2. ALLOPURINOL. [Suspect]
     Active Substance: ALLOPURINOL
     Indication: HYPERURICAEMIA
     Dosage: LONG-TERM THERAPY
  3. ETORICOXIB [Suspect]
     Active Substance: ETORICOXIB
     Indication: ARTHRALGIA
  4. PREDNISOLONE. [Suspect]
     Active Substance: PREDNISOLONE
     Indication: TOXIC EPIDERMAL NECROLYSIS
     Dosage: INITIAL: (1MG/KG BW/DIE), DOSE INCREASED TO 3MG/KG BW
     Route: 042

REACTIONS (3)
  - No adverse event [Unknown]
  - Toxic epidermal necrolysis [Recovered/Resolved]
  - Drug ineffective [Unknown]
